FAERS Safety Report 8856869 (Version 1)
Quarter: 2012Q4

REPORT INFORMATION
  Report Type: Spontaneous
  Country: US (occurrence: None)
  Receive Date: 20121023
  Receipt Date: 20121023
  Transmission Date: 20130627
  Serious: Yes (Disabling)
  Sender: FDA-Public Use
  Company Number: None

PATIENT
  Sex: Male
  Weight: 58.97 kg

DRUGS (4)
  1. DONEPEZIL HYDROCHLORIDE [Suspect]
     Dosage: 10 mg 1 tablet mouth Daily for 9 Mos.
     Route: 048
     Dates: start: 20120124, end: 20121003
  2. MULTAQ [Concomitant]
  3. DIGOXIN [Concomitant]
  4. LISINOPRIL [Concomitant]

REACTIONS (5)
  - Weight decreased [None]
  - Fatigue [None]
  - Somnolence [None]
  - Pruritus [None]
  - Back pain [None]
